FAERS Safety Report 4371850-5 (Version None)
Quarter: 2004Q2

REPORT INFORMATION
  Report Type: 
  Country: None (occurrence: None)
  Receive Date: 20040604
  Receipt Date: 20040604
  Transmission Date: 20050107
  Serious: No
  Sender: FDA-Public Use
  Company Number: None

PATIENT
  Sex: Male
  Weight: 6.78 kg

DRUGS (2)
  1. FLUOXETINE [Suspect]
     Dosage: 6.4 MG PO QD
     Route: 048
     Dates: start: 20040527, end: 20040607
  2. ZANTAC [Concomitant]

REACTIONS (2)
  - MEDICATION ERROR [None]
  - TREMOR [None]
